FAERS Safety Report 11925617 (Version 2)
Quarter: 2016Q1

REPORT INFORMATION
  Report Type: Report from Study
  Country: US (occurrence: US)
  Receive Date: 20160118
  Receipt Date: 20160217
  Transmission Date: 20160526
  Serious: Yes (Hospitalization, Other)
  Sender: FDA-Public Use
  Company Number: US-GILEAD-2016-0193264

PATIENT
  Age: 44 Year
  Sex: Female

DRUGS (1)
  1. AMBRISENTAN [Suspect]
     Active Substance: AMBRISENTAN
     Indication: PRODUCT USED FOR UNKNOWN INDICATION
     Dosage: 10 MG, QD
     Route: 065
     Dates: start: 20150929

REACTIONS (6)
  - Wheezing [Unknown]
  - Diabetes mellitus [Unknown]
  - Pulmonary oedema [Unknown]
  - Lung infection [Unknown]
  - Asthma [Unknown]
  - Fatigue [Unknown]

NARRATIVE: CASE EVENT DATE: 20151213
